FAERS Safety Report 9387934 (Version 1)
Quarter: 2013Q3

REPORT INFORMATION
  Report Type: Spontaneous
  Country: US (occurrence: US)
  Receive Date: 20130708
  Receipt Date: 20130708
  Transmission Date: 20140515
  Serious: No
  Sender: FDA-Public Use
  Company Number: US-TEVA-413037USA

PATIENT
  Age: 34 Year
  Sex: Female
  Weight: 66.74 kg

DRUGS (1)
  1. PARAGARD 380A [Suspect]
     Indication: CONTRACEPTION
     Route: 015
     Dates: start: 20130208, end: 20130605

REACTIONS (4)
  - Menometrorrhagia [Recovered/Resolved]
  - Metrorrhagia [Recovered/Resolved]
  - Vaginal discharge [Recovered/Resolved]
  - Pelvic pain [Recovered/Resolved]
